FAERS Safety Report 5382265-5 (Version None)
Quarter: 2007Q3

REPORT INFORMATION
  Report Type: 
  Country: None (occurrence: None)
  Receive Date: 20070709
  Receipt Date: 20070627
  Transmission Date: 20080115
  Serious: Yes (Other)
  Sender: FDA-Public Use
  Company Number: GB-PFIZER INC-2007048528

PATIENT
  Age: 56 Year
  Sex: Male

DRUGS (7)
  1. EPANUTIN SUSPENSION [Suspect]
     Indication: EPILEPSY
     Route: 048
  2. NIQUITIN [Interacting]
     Indication: EX-SMOKER
  3. ANTIHYPERTENSIVES [Concomitant]
  4. FRUSEMIDE [Concomitant]
  5. CAPTOPRIL [Concomitant]
  6. PERSANTIN [Concomitant]
  7. VERAPAMIL [Concomitant]

REACTIONS (3)
  - BLOOD PRESSURE DECREASED [None]
  - CONVULSION [None]
  - DRUG INTERACTION [None]
